FAERS Safety Report 15587665 (Version 2)
Quarter: 2018Q4

REPORT INFORMATION
  Report Type: Report from Study
  Country: SE (occurrence: SE)
  Receive Date: 20181105
  Receipt Date: 20181122
  Transmission Date: 20190205
  Serious: No
  Sender: FDA-Public Use
  Company Number: PHHY2018SE112625

PATIENT
  Age: 9 Year
  Sex: Male
  Weight: 50.1 kg

DRUGS (3)
  1. DABRAFENIB [Suspect]
     Active Substance: DABRAFENIB
     Indication: GANGLIOGLIOMA
     Dosage: 126 MG, QD (5.25 MG/KG)
     Route: 048
     Dates: start: 20180212
  2. DABRAFENIB [Suspect]
     Active Substance: DABRAFENIB
     Dosage: 126 MG, QD
     Route: 048
     Dates: start: 20180920
  3. DABRAFENIB [Suspect]
     Active Substance: DABRAFENIB
     Dosage: 260 MG, QD
     Route: 048
     Dates: start: 20181026

REACTIONS (5)
  - Acne [Not Recovered/Not Resolved]
  - Dry skin [Unknown]
  - Dizziness [Recovered/Resolved]
  - Keratosis pilaris [Unknown]
  - Weight increased [Not Recovered/Not Resolved]

NARRATIVE: CASE EVENT DATE: 20180404
